FAERS Safety Report 9222079 (Version 3)
Quarter: 2013Q3

REPORT INFORMATION
  Report Type: Report from Study
  Country: BR (occurrence: BR)
  Receive Date: 20130410
  Receipt Date: 20130904
  Transmission Date: 20140515
  Serious: Yes (Other)
  Sender: FDA-Public Use
  Company Number: PHHY2013BR034357

PATIENT
  Sex: Female
  Weight: 73 kg

DRUGS (11)
  1. APRESOLIN [Suspect]
     Indication: ARRHYTHMIA
     Dosage: 3 DF(25MG), DAILY
     Route: 048
  2. APRESOLIN [Suspect]
     Indication: OFF LABEL USE
     Dosage: 2 DF(25MG), DAILY
     Route: 048
  3. DIOVAN AMLO FIX [Suspect]
     Indication: HYPERTENSION
     Dosage: 1 DF(320/10MG), QD (IN THE BREAKFAST)
     Route: 048
     Dates: start: 20110921, end: 201111
  4. LOSARTAN [Suspect]
     Dosage: 0.5 DF (50 MG) DAILY
     Route: 048
  5. SELOZOK [Suspect]
     Indication: ANGINA PECTORIS
     Dosage: 2 DF(25MG), DAILY
     Route: 048
  6. ATENSIN [Suspect]
     Indication: HYPERTENSION
     Dosage: 1 DF(10MG), DAILY
     Route: 048
     Dates: start: 2010, end: 2010
  7. ALDOMET [Suspect]
     Indication: HYPERTENSION
     Dosage: 2 DF, (25 MG) DAILY
     Route: 048
     Dates: start: 2010, end: 2010
  8. DIURIX//HYDROCHLOROTHIAZIDE [Concomitant]
     Indication: HYPERTENSION
     Dosage: 1 DF, DAILY
     Route: 048
  9. NAPRIX [Concomitant]
     Indication: HYPERTENSION
     Dosage: 1 DF, DAILY
     Route: 048
     Dates: start: 2010, end: 2010
  10. ATENOLOL [Concomitant]
     Indication: HYPERTENSION
     Dosage: 2 DF, DAILY
     Route: 048
     Dates: start: 2010, end: 2010
  11. ADALAT [Concomitant]
     Indication: HYPERTENSION
     Dosage: 1 DF, DAILY
     Route: 048
     Dates: start: 2010, end: 2010

REACTIONS (18)
  - Diabetes mellitus [Not Recovered/Not Resolved]
  - Feeling abnormal [Not Recovered/Not Resolved]
  - Agitation [Not Recovered/Not Resolved]
  - Dysstasia [Recovered/Resolved]
  - Hypersomnia [Recovered/Resolved]
  - Nervousness [Not Recovered/Not Resolved]
  - Neck pain [Not Recovered/Not Resolved]
  - Retching [Recovered/Resolved]
  - Arrhythmia [Recovered/Resolved]
  - Asthenia [Recovered/Resolved]
  - Tachycardia [Not Recovered/Not Resolved]
  - Oropharyngeal discomfort [Not Recovered/Not Resolved]
  - Vision blurred [Recovered/Resolved]
  - Insomnia [Not Recovered/Not Resolved]
  - Feeling hot [Not Recovered/Not Resolved]
  - Chest pain [Not Recovered/Not Resolved]
  - Blood pressure decreased [Recovered/Resolved]
  - Anxiety [Not Recovered/Not Resolved]
